FAERS Safety Report 10203933 (Version 1)
Quarter: 2014Q2

REPORT INFORMATION
  Report Type: Spontaneous
  Country: US (occurrence: US)
  Receive Date: 20140529
  Receipt Date: 20140529
  Transmission Date: 20141212
  Serious: No
  Sender: FDA-Public Use
  Company Number: US-MYLANLABS-2013S1020845

PATIENT
  Age: 58 Year
  Sex: Female
  Weight: 52.16 kg

DRUGS (5)
  1. BUPROPION HYDROCHLORIDE TABLETS [Suspect]
     Indication: DEPRESSION
     Route: 048
     Dates: start: 201301
  2. PAXIL /00830802/ [Concomitant]
     Indication: DEPRESSION
  3. SOMA [Concomitant]
  4. VICODIN [Concomitant]
     Indication: PAIN
  5. XANAX [Concomitant]
     Indication: INSOMNIA
     Route: 048

REACTIONS (2)
  - Dysgeusia [Not Recovered/Not Resolved]
  - Nausea [Not Recovered/Not Resolved]
